FAERS Safety Report 15068487 (Version 1)
Quarter: 2018Q2

REPORT INFORMATION
  Report Type: Spontaneous
  Country: US (occurrence: US)
  Receive Date: 20180626
  Receipt Date: 20180626
  Transmission Date: 20180711
  Serious: No
  Sender: FDA-Public Use
  Company Number: US-AMGEN-USASP2017128296

PATIENT
  Age: 67 Year
  Sex: Female

DRUGS (2)
  1. NIRAPARIB [Concomitant]
     Active Substance: NIRAPARIB
     Indication: OVARIAN CANCER
     Dosage: UNK UNK, QD
  2. NEULASTA [Suspect]
     Active Substance: PEGFILGRASTIM
     Indication: PRODUCT USED FOR UNKNOWN INDICATION
     Dosage: UNK
     Route: 065

REACTIONS (1)
  - Neutrophil count abnormal [Unknown]

NARRATIVE: CASE EVENT DATE: 2017
